FAERS Safety Report 9476244 (Version 3)
Quarter: 2013Q3

REPORT INFORMATION
  Report Type: Spontaneous
  Country: DE (occurrence: DE)
  Receive Date: 20130826
  Receipt Date: 20130918
  Transmission Date: 20140515
  Serious: Yes (Life-Threatening, Hospitalization)
  Sender: FDA-Public Use
  Company Number: DE-JNJFOC-20130805167

PATIENT
  Age: 73 Year
  Sex: Male
  Weight: 90 kg

DRUGS (12)
  1. XARELTO [Suspect]
     Indication: CEREBROVASCULAR ACCIDENT PROPHYLAXIS
     Route: 048
     Dates: start: 20130717, end: 20130724
  2. XARELTO [Suspect]
     Indication: ATRIAL FIBRILLATION
     Route: 048
     Dates: start: 20130717, end: 20130724
  3. ASS [Concomitant]
     Dosage: 100 QD
     Route: 065
  4. PANTOPRAZOLE [Concomitant]
     Route: 065
  5. RAMIPRIL [Concomitant]
     Route: 065
  6. SIMVASTATIN [Concomitant]
     Route: 065
  7. INSPRA [Concomitant]
     Route: 065
  8. BISOBETA [Concomitant]
     Route: 065
  9. DIGITOXIN [Concomitant]
     Route: 065
  10. XIPAMID [Concomitant]
     Route: 065
  11. TORASEMID [Concomitant]
     Route: 065
  12. EUCREAS [Concomitant]
     Dosage: 100/ 2000 MG
     Route: 065

REACTIONS (8)
  - Eye haemorrhage [Recovered/Resolved]
  - Pulmonary haemorrhage [Recovered/Resolved]
  - Mouth haemorrhage [Recovered/Resolved]
  - Tracheal haemorrhage [Recovered/Resolved]
  - Urogenital haemorrhage [Recovered/Resolved]
  - Coagulopathy [Recovered/Resolved]
  - Catheter site haemorrhage [Recovered/Resolved]
  - Dyspnoea [Unknown]
